FAERS Safety Report 11405431 (Version 2)
Quarter: 2015Q3

REPORT INFORMATION
  Report Type: Report from Study
  Country: US (occurrence: US)
  Receive Date: 20150821
  Receipt Date: 20150828
  Transmission Date: 20151125
  Serious: Yes (Hospitalization, Other)
  Sender: FDA-Public Use
  Company Number: US-ASTRAZENECA-2015SE64178

PATIENT
  Age: 865 Month
  Sex: Male
  Weight: 101.2 kg

DRUGS (18)
  1. BYDUREON [Suspect]
     Active Substance: EXENATIDE
     Indication: DIABETES MELLITUS
     Route: 058
  2. CARAFATE [Concomitant]
     Active Substance: SUCRALFATE
     Dosage: 1GM, SUCRALFATE
  3. THERAGRAN-M [Concomitant]
     Active Substance: VITAMINS
     Route: 048
     Dates: end: 20150510
  4. NOVOLOG [Concomitant]
     Active Substance: INSULIN ASPART
     Dosage: U-100 INSULIN VL10ML(ORANG)
  5. HUMALOG [Concomitant]
     Active Substance: INSULIN LISPRO
  6. ALEGRA [Concomitant]
     Route: 048
     Dates: end: 20150510
  7. LANTUS [Concomitant]
     Active Substance: INSULIN GLARGINE
     Dosage: 100UNIT/ML, 28 UNITS IN THE MORNING AT BREAKFAST, 15 UNITS EVENINGS AT DINNER
     Route: 058
  8. PANTOPRAZOLE [Concomitant]
     Active Substance: PANTOPRAZOLE SODIUM
  9. ASACOL [Concomitant]
     Active Substance: MESALAMINE
     Route: 048
     Dates: end: 20150510
  10. LIPITOR [Concomitant]
     Active Substance: ATORVASTATIN CALCIUM
     Route: 048
     Dates: end: 20150510
  11. PRILOSEC [Suspect]
     Active Substance: OMEPRAZOLE MAGNESIUM
     Route: 048
  12. FLOMAX [Concomitant]
     Active Substance: TAMSULOSIN HYDROCHLORIDE
     Route: 048
  13. BYDUREON [Suspect]
     Active Substance: EXENATIDE
     Indication: DIABETES MELLITUS
     Route: 058
     Dates: start: 20150509
  14. VASOTEC [Concomitant]
     Active Substance: ENALAPRIL MALEATE
     Route: 048
     Dates: end: 20150510
  15. LOPRESSOR [Concomitant]
     Active Substance: METOPROLOL TARTRATE
     Route: 048
     Dates: end: 20150510
  16. ATORVASTATIN [Concomitant]
     Active Substance: ATORVASTATIN
  17. CARAFATE [Concomitant]
     Active Substance: SUCRALFATE
     Dosage: 1GM/10ML SUSPENSION
  18. ASPIRIN. [Concomitant]
     Active Substance: ASPIRIN
     Route: 048
     Dates: end: 20150510

REACTIONS (17)
  - Hypertension [Unknown]
  - Pleural effusion [Unknown]
  - Feeling abnormal [Unknown]
  - Oesophagitis [Unknown]
  - Odynophagia [Unknown]
  - Vomiting [Unknown]
  - Duodenal ulcer [Unknown]
  - Nausea [Not Recovered/Not Resolved]
  - Vomiting projectile [Unknown]
  - Dysphagia [Unknown]
  - Ketoacidosis [Unknown]
  - Abdominal pain [Unknown]
  - Palpitations [Unknown]
  - Blood glucose increased [Unknown]
  - Gastritis [Unknown]
  - Hiatus hernia [Unknown]
  - Emphysema [Unknown]

NARRATIVE: CASE EVENT DATE: 201505
